FAERS Safety Report 7525991-1 (Version None)
Quarter: 2011Q2

REPORT INFORMATION
  Report Type: 
  Country: None (occurrence: None)
  Receive Date: 20110606
  Receipt Date: 20080214
  Transmission Date: 20111010
  Serious: Yes (Hospitalization, Other)
  Sender: FDA-Public Use
  Company Number: US-BAYER-2011-010567

PATIENT
  Age: 76 Year
  Sex: Male
  Weight: 86 kg

DRUGS (27)
  1. TRASYLOL [Suspect]
     Indication: CORONARY ARTERY BYPASS
     Dosage: 1 ML, ONCE, TEST DOSE
     Route: 042
     Dates: start: 20061220, end: 20061220
  2. VISIPAQUE [Concomitant]
     Dosage: UNK
     Dates: start: 20061213
  3. VERSED [Concomitant]
     Dosage: UNK
     Route: 042
     Dates: start: 20061220, end: 20061220
  4. CARDIOPLEGIA [Concomitant]
     Dosage: 500 ML, UNK
     Route: 042
     Dates: start: 20061220, end: 20061220
  5. CARDIOPLEGIA [Concomitant]
     Dosage: 500 ML, UNK
     Route: 042
     Dates: start: 20061220, end: 20061220
  6. MAGNESIUM SULFATE [Concomitant]
     Dosage: 2 G, UNK
     Route: 042
     Dates: start: 20061220, end: 20061220
  7. MILRINONE [Concomitant]
     Dosage: 3 MG, UNK
     Route: 042
     Dates: start: 20061220, end: 20061220
  8. TRASYLOL [Suspect]
     Dosage: 200 ML, ONCE, LOADING DOSE
     Route: 042
     Dates: start: 20061220, end: 20061220
  9. TRASYLOL [Suspect]
     Dosage: 200 ML, ONCE, LOADING DOSE
     Route: 042
     Dates: start: 20061220, end: 20061220
  10. NORVASC [Concomitant]
     Dosage: 10 MG, QD
  11. DECADRON [Concomitant]
     Dosage: UNK
     Route: 042
     Dates: start: 20061220, end: 20061220
  12. ALBUMIN (HUMAN) [Concomitant]
     Dosage: 25 G, UNK
     Route: 042
     Dates: start: 20061220, end: 20061220
  13. POTASSIUM CHLORIDE [Concomitant]
     Dosage: 14 MEQ, UNK
     Route: 042
     Dates: start: 20061220, end: 20061220
  14. CALCIUM CHLORIDE [Concomitant]
     Dosage: 500 MG, UNK
     Route: 042
     Dates: start: 20061220, end: 20061220
  15. METOPROLOL TARTRATE [Concomitant]
     Dosage: 25 MG, BID
     Route: 048
  16. HEPARIN [Concomitant]
     Dosage: 10000 U, UNK
     Route: 042
     Dates: start: 20061220, end: 20061220
  17. CARDIZEM [Concomitant]
     Dosage: UNK
     Route: 042
     Dates: start: 20061220, end: 20061220
  18. EPINEPHRINE [Concomitant]
     Dosage: 11000ML/500ML, UNK
     Route: 042
     Dates: start: 20061220, end: 20061220
  19. LIDOCAINE [Concomitant]
     Dosage: 100 MG, UNK
     Route: 042
     Dates: start: 20061220, end: 20061220
  20. TRASYLOL [Suspect]
     Dosage: 50 ML, Q1HR
     Route: 042
     Dates: start: 20061220, end: 20061220
  21. LASIX [Concomitant]
     Route: 048
  22. POTASSIUM CHLORIDE [Concomitant]
     Dosage: 4 MEQ, UNK
     Route: 042
     Dates: start: 20061220, end: 20061220
  23. CARDIOPLEGIA [Concomitant]
     Dosage: 1000 UNK, UNK
     Route: 042
     Dates: start: 20061220, end: 20061220
  24. CARDIOPLEGIA [Concomitant]
     Dosage: 500 ML, UNK
     Route: 042
     Dates: start: 20061220, end: 20061220
  25. TRASYLOL [Suspect]
     Dosage: 100 ML, UNK
     Route: 042
     Dates: start: 20061220, end: 20061220
  26. HEPARIN [Concomitant]
     Dosage: 10000 U, UNK
     Route: 042
     Dates: start: 20061220, end: 20061220
  27. MANNITOL [Concomitant]
     Dosage: 25 G, UNK
     Route: 042
     Dates: start: 20061220, end: 20061220

REACTIONS (9)
  - FEAR [None]
  - UNEVALUABLE EVENT [None]
  - PAIN [None]
  - RENAL FAILURE [None]
  - ANXIETY [None]
  - STRESS [None]
  - RENAL INJURY [None]
  - RENAL IMPAIRMENT [None]
  - EMOTIONAL DISTRESS [None]
